FAERS Safety Report 10182566 (Version 4)
Quarter: 2014Q3

REPORT INFORMATION
  Report Type: Spontaneous
  Country: US (occurrence: None)
  Receive Date: 20140516
  Receipt Date: 20140723
  Transmission Date: 20150326
  Serious: Yes (Hospitalization, Other)
  Sender: FDA-Public Use
  Company Number: ADR-2014-00769

PATIENT
  Age: 33 Year
  Sex: Female

DRUGS (2)
  1. ORAL BACLOFEN [Suspect]
     Active Substance: BACLOFEN
     Indication: MUSCLE SPASTICITY
     Dosage: SEE B5
  2. COMPOUNDED BACLOFEN [Suspect]
     Active Substance: BACLOFEN
     Indication: MUSCLE SPASTICITY
     Dates: start: 2006

REACTIONS (7)
  - Hypotonia [None]
  - Medical device complication [None]
  - Cyst [None]
  - Spinal cord disorder [None]
  - Drug ineffective [None]
  - Device kink [None]
  - Muscle spasticity [None]
